FAERS Safety Report 17445753 (Version 7)
Quarter: 2021Q2

REPORT INFORMATION
  Report Type: Spontaneous
  Country: US (occurrence: US)
  Receive Date: 20200221
  Receipt Date: 20210413
  Transmission Date: 20210716
  Serious: Yes (Other)
  Sender: FDA-Public Use
  Company Number: US-PFIZER INC-2019515335

PATIENT
  Age: 78 Year
  Sex: Male
  Weight: 106.57 kg

DRUGS (4)
  1. LYRICA [Suspect]
     Active Substance: PREGABALIN
     Indication: NEUROPATHY PERIPHERAL
     Dosage: 400 MG, 1X/DAY [AT BEDTIME]
     Route: 048
  2. LYRICA [Suspect]
     Active Substance: PREGABALIN
     Indication: PLASMA CELL MYELOMA
     Dosage: 450 MG, DAILY [TAKE 250 MG IN THE AM AND 200 MG AT BEDTIME]
     Route: 048
  3. LYRICA [Suspect]
     Active Substance: PREGABALIN
     Dosage: 50 MG, 1X/DAY (IN THE MORNING)
     Route: 048
  4. LYRICA [Suspect]
     Active Substance: PREGABALIN
     Indication: POLYNEUROPATHY
     Dosage: 450 MG, DAILY [TAKE 1 50 MG IN THE MORNING, 2 200 MG AT BEDTIME]
     Route: 048

REACTIONS (1)
  - Plasma cell myeloma [Unknown]
